FAERS Safety Report 8374911 (Version 2)
Quarter: 2013Q1

REPORT INFORMATION
  Report Type: Report from Study
  Country: US (occurrence: US)
  Receive Date: 20120129
  Receipt Date: 20130129
  Transmission Date: 20140127
  Serious: Yes (Other)
  Sender: FDA-Public Use
  Company Number: US-ABBOTT-11P-163-0882376-00

PATIENT
  Age: 57 None
  Sex: Female
  Weight: 57.2 kg

DRUGS (12)
  1. HUMIRA 40 MG/0.8 ML PEN [Suspect]
     Indication: RHEUMATOID ARTHRITIS
     Route: 058
     Dates: start: 20110924
  2. METHOTREXATE [Concomitant]
     Indication: RHEUMATOID ARTHRITIS
     Dosage: WEEKLY
     Route: 048
     Dates: start: 201009
  3. LOMOTIL [Concomitant]
     Indication: DIARRHOEA
     Dosage: 4-6 PILLS DAILY AS NEEDED
  4. FOLIC ACID [Concomitant]
     Indication: VITAMIN SUPPLEMENTATION
  5. TYLENOL # 3 [Concomitant]
     Indication: ARTHRALGIA
     Dosage: 1-2 TABS DAILY AS NEEDED
  6. TEMAZEPAM [Concomitant]
     Indication: ANXIETY
  7. AMBIEN [Concomitant]
     Indication: RESTLESSNESS
  8. FEMHRT [Concomitant]
     Indication: HORMONE REPLACEMENT THERAPY
  9. CELEBREX [Concomitant]
     Indication: PRODUCT USED FOR UNKNOWN INDICATION
  10. VOLTAREN [Concomitant]
     Indication: PRODUCT USED FOR UNKNOWN INDICATION
     Dosage: GEL
  11. FOLTX [Concomitant]
     Indication: PRODUCT USED FOR UNKNOWN INDICATION
  12. FAMOTIDINE [Concomitant]
     Indication: PRODUCT USED FOR UNKNOWN INDICATION

REACTIONS (6)
  - Squamous cell carcinoma of skin [Recovered/Resolved]
  - Injection site rash [Recovered/Resolved]
  - Injection site mass [Recovered/Resolved]
  - Injection site pruritus [Recovered/Resolved]
  - Injection site induration [Recovered/Resolved]
  - Injection site vesicles [Recovered/Resolved]
